FAERS Safety Report 14731482 (Version 2)
Quarter: 2018Q2

REPORT INFORMATION
  Report Type: Spontaneous
  Country: JP (occurrence: JP)
  Receive Date: 20180407
  Receipt Date: 20180504
  Transmission Date: 20180711
  Serious: Yes (Other)
  Sender: FDA-Public Use
  Company Number: JP-AMGEN-JPNSP2017096842

PATIENT
  Age: 75 Year
  Sex: Male
  Weight: 37 kg

DRUGS (13)
  1. PRODIF [Concomitant]
     Active Substance: FOSFLUCONAZOLE
     Indication: SYSTEMIC MYCOSIS
     Dosage: 100 MG, 3X/WEEK
     Route: 042
     Dates: start: 20170222, end: 20170530
  2. HEPAFILLED [Concomitant]
     Indication: CHRONIC KIDNEY DISEASE
     Dosage: 3200 IU, 3 TIMES/WK
     Route: 041
  3. PLAVIX [Concomitant]
     Active Substance: CLOPIDOGREL BISULFATE
     Indication: CEREBRAL INFARCTION
     Dosage: 75 MG, QD
     Route: 048
  4. NESP [Suspect]
     Active Substance: DARBEPOETIN ALFA
     Indication: NEPHROGENIC ANAEMIA
     Dosage: 60 MUG, QWK
     Route: 040
     Dates: start: 20170208
  5. AZILVA [Concomitant]
     Active Substance: AZILSARTAN KAMEDOXOMIL
     Indication: HYPERTENSION
     Dosage: 20 MG, QD
     Route: 048
  6. LANSOPRAZOLE. [Concomitant]
     Active Substance: LANSOPRAZOLE
     Indication: GASTROOESOPHAGEAL REFLUX DISEASE
     Dosage: 15 MG, QD
     Route: 048
  7. REMINYL [Concomitant]
     Active Substance: GALANTAMINE
     Indication: DEMENTIA
     Dosage: 4 MG, BID
     Route: 048
     Dates: start: 20140801, end: 20170630
  8. INTRALIPOS [Concomitant]
     Active Substance: SOYBEAN OIL
     Indication: CHRONIC DISEASE
     Dosage: 100 ML, 3 TIMES/WK
     Route: 041
     Dates: start: 20170315
  9. HISHIPHAGEN C [Concomitant]
     Indication: PRURITUS
     Dosage: 20 ML, 3 TIMES/WK
     Route: 042
  10. PLETAAL [Concomitant]
     Active Substance: CILOSTAZOL
     Indication: CEREBRAL INFARCTION
     Dosage: 100 MG, BID
     Route: 048
  11. NESP [Suspect]
     Active Substance: DARBEPOETIN ALFA
     Dosage: 60 MUG, QWK
     Route: 040
     Dates: start: 20170713
  12. ELEMENMIC [Concomitant]
     Active Substance: CUPRIC SULFATE\FERRIC CHLORIDE\MANGANESE CHLORIDE\POTASSIUM IODIDE\ZINC SULFATE
     Indication: COPPER DEFICIENCY
     Dosage: 2 ML, 3 TIMES/WK
     Route: 041
     Dates: start: 20170315
  13. AMLODIPINE [Concomitant]
     Active Substance: AMLODIPINE BESYLATE
     Indication: HYPERTENSION
     Dosage: 5 MG, BID
     Route: 048

REACTIONS (2)
  - Drug ineffective [Unknown]
  - Anaemia [Recovering/Resolving]

NARRATIVE: CASE EVENT DATE: 20170606
